FAERS Safety Report 9415014 (Version 1)
Quarter: 2013Q3

REPORT INFORMATION
  Report Type: Spontaneous
  Country: AU (occurrence: AU)
  Receive Date: 20130723
  Receipt Date: 20130723
  Transmission Date: 20140515
  Serious: Yes (Hospitalization)
  Sender: FDA-Public Use
  Company Number: AU-009507513-1307AUS008419

PATIENT
  Age: 7 Year
  Sex: Female

DRUGS (2)
  1. CLARATYNE [Suspect]
     Dosage: 60 ML, UNK
     Route: 048
     Dates: start: 20111107
  2. ZYRTEC [Suspect]
     Dosage: 50 ML, UNK
     Route: 048
     Dates: start: 20111107

REACTIONS (1)
  - Intentional overdose [Unknown]
